FAERS Safety Report 5876190-0 (Version None)
Quarter: 2008Q3

REPORT INFORMATION
  Report Type: 
  Country: None (occurrence: None)
  Receive Date: 20080908
  Receipt Date: 20080908
  Transmission Date: 20090109
  Serious: Yes (Other)
  Sender: FDA-Public Use
  Company Number: None

PATIENT
  Age: 61 Year
  Sex: Male
  Weight: 92.9874 kg

DRUGS (1)
  1. GADOLINIUM DYE [Suspect]
     Indication: NUCLEAR MAGNETIC RESONANCE IMAGING
     Dosage: ONCE IV
     Route: 042
     Dates: start: 20080521, end: 20080521

REACTIONS (11)
  - ABDOMINAL DISTENSION [None]
  - BURNING SENSATION [None]
  - CHEST PAIN [None]
  - ERYTHEMA [None]
  - IMMUNE SYSTEM DISORDER [None]
  - INSOMNIA [None]
  - OEDEMA PERIPHERAL [None]
  - PRURITUS [None]
  - RASH PAPULAR [None]
  - SKIN DISORDER [None]
  - URTICARIA [None]
